FAERS Safety Report 5375857-0 (Version None)
Quarter: 2007Q3

REPORT INFORMATION
  Report Type: 
  Country: None (occurrence: None)
  Receive Date: 20070702
  Receipt Date: 20070626
  Transmission Date: 20080115
  Serious: Yes (Hospitalization, Other)
  Sender: FDA-Public Use
  Company Number: PHEH2007US05538

PATIENT
  Age: 65 Year
  Sex: Female

DRUGS (26)
  1. ZELNORM [Suspect]
     Indication: CONSTIPATION
     Dosage: 6 MG, BID
     Route: 048
     Dates: start: 20061207, end: 20070501
  2. DEMADEX [Concomitant]
  3. HYDROCHLOROTHIAZIDE [Concomitant]
     Dosage: 50 MG, UNK
  4. VESICARE [Concomitant]
     Dosage: 10 MG, UNK
  5. ATENOLOL [Concomitant]
     Dosage: 50 MG, BID
  6. IMDUR [Concomitant]
     Dosage: 60 MG, QD
  7. SYNTHROID [Concomitant]
     Dosage: 100 UG, QD
  8. SLOW-MAG [Concomitant]
     Dosage: 64 MG, TID
  9. ASPIRIN [Concomitant]
     Dosage: 325 MG, QD
  10. K-DUR 10 [Concomitant]
     Dosage: 20 MG, TID
  11. NEXIUM [Concomitant]
     Dosage: 20 MG, BID
  12. COLACE [Concomitant]
     Dosage: 20 MG, UNK
  13. GAVISCON                                /GFR/ [Concomitant]
  14. BENEFIBER [Concomitant]
  15. KRISTALOSE [Concomitant]
     Dosage: 20 G, QD
  16. ZYRTEC [Concomitant]
     Dosage: 10 MG, QD
  17. NEURONTIN [Concomitant]
     Dosage: 300 MG, TID
  18. DIAZEPAM [Concomitant]
     Dosage: 5 MG, Q6H
  19. TIZANIDINE HCL [Concomitant]
     Dosage: 4 MG, UNK
  20. SINGULAIR [Concomitant]
     Dosage: 10 MG, QD
  21. MUCINEX [Concomitant]
     Dosage: 600 MG, QD
  22. BENADRYL [Concomitant]
     Dosage: UNK, PRN
  23. OXYCODONE HCL AND ACETAMINOPHEN [Concomitant]
     Indication: SPINAL COLUMN STENOSIS
  24. SPIRIVA [Concomitant]
     Dosage: 18 UG, UNK
  25. ALBUTEROL [Concomitant]
  26. XOPENEX [Concomitant]
     Dosage: UNK, QID

REACTIONS (5)
  - AMNESIA [None]
  - CEREBROVASCULAR ACCIDENT [None]
  - FACIAL PALSY [None]
  - ISCHAEMIA [None]
  - MUSCULAR WEAKNESS [None]
